FAERS Safety Report 8991158 (Version 1)
Quarter: 2012Q4

REPORT INFORMATION
  Report Type: Spontaneous
  Country: US (occurrence: None)
  Receive Date: 20121227
  Receipt Date: 20121227
  Transmission Date: 20130627
  Serious: Yes (Other)
  Sender: FDA-Public Use
  Company Number: None

PATIENT
  Age: 52 Year
  Sex: Female

DRUGS (2)
  1. XELODA 500MG ROCHE PHARAMCEUTICALS [Suspect]
     Dosage: 1800mg bid x 14 days,
off 7 days, then po
     Route: 048
     Dates: start: 20120914
  2. XELODA 150M ROCHE PHARMACEUTICALS [Suspect]
     Dosage: 1800mg bid x 14 days, 
off 7 days, then po
     Route: 048
     Dates: start: 20120914

REACTIONS (4)
  - Dry skin [None]
  - Onychalgia [None]
  - Masked facies [None]
  - Drug ineffective [None]
